FAERS Safety Report 18500911 (Version 1)
Quarter: 2020Q4

REPORT INFORMATION
  Report Type: Spontaneous
  Country: US (occurrence: US)
  Receive Date: 20201113
  Receipt Date: 20201113
  Transmission Date: 20210114
  Serious: Yes (Death)
  Sender: FDA-Public Use
  Company Number: None

PATIENT
  Age: 70 Year
  Sex: Female

DRUGS (1)
  1. RETACRIT [Suspect]
     Active Substance: EPOETIN ALFA-EPBX
     Indication: RENAL DISORDER
     Dosage: ?          OTHER FREQUENCY:INJ 1ML SC Q 2 WK;?
     Route: 058
     Dates: start: 20200721

REACTIONS (1)
  - Death [None]
